FAERS Safety Report 20696466 (Version 1)
Quarter: 2022Q2

REPORT INFORMATION
  Report Type: Other
  Country: IN (occurrence: None)
  Receive Date: 20220411
  Receipt Date: 20220411
  Transmission Date: 20220721
  Serious: Yes (Other)
  Sender: FDA-Public Use
  Company Number: IN-ROCHE-3067818

PATIENT
  Age: 63 Year
  Sex: Female

DRUGS (1)
  1. PERJETA [Suspect]
     Active Substance: PERTUZUMAB
     Indication: Breast cancer
     Dosage: 21 DAYS INTERVAL
     Route: 042

REACTIONS (4)
  - Hyperchlorhydria [Unknown]
  - Dyspepsia [Unknown]
  - Diarrhoea [Unknown]
  - Rash [Unknown]
